FAERS Safety Report 16484939 (Version 1)
Quarter: 2019Q2

REPORT INFORMATION
  Report Type: Spontaneous
  Country: BE (occurrence: US)
  Receive Date: 20190516
  Receipt Date: 20190516
  Transmission Date: 20190711
  Serious: Yes (Hospitalization)
  Sender: FDA-Public Use
  Company Number: None

PATIENT
  Age: 45 Year
  Sex: Male
  Weight: 105 kg

DRUGS (4)
  1. IFOSFAMIDE. [Suspect]
     Active Substance: IFOSFAMIDE
     Dates: end: 20190503
  2. CISPLATIN. [Suspect]
     Active Substance: CISPLATIN
     Dates: end: 20190503
  3. G-CSF (FILGRASTIM, AMGEN) [Suspect]
     Active Substance: FILGRASTIM
     Dates: end: 20190507
  4. TAXOL [Suspect]
     Active Substance: PACLITAXEL
     Dates: end: 20190429

REACTIONS (2)
  - Febrile neutropenia [None]
  - Thrombophlebitis [None]

NARRATIVE: CASE EVENT DATE: 20190507
